FAERS Safety Report 8482641-8 (Version None)
Quarter: 2012Q3

REPORT INFORMATION
  Report Type: 
  Country: None (occurrence: None)
  Receive Date: 20120702
  Receipt Date: 20120627
  Transmission Date: 20120928
  Serious: Yes (Hospitalization, Disabling)
  Sender: FDA-Public Use
  Company Number: US-MERCK-1203USA03483

PATIENT
  Age: 64 Year
  Sex: Female

DRUGS (6)
  1. FOSAMAX [Suspect]
     Route: 065
     Dates: start: 20070319, end: 20110305
  2. FOSAMAX PLUS D [Suspect]
     Indication: OSTEOPOROSIS
     Route: 048
     Dates: start: 20000128, end: 20010110
  3. FOSAMAX [Suspect]
     Indication: OSTEOPOROSIS
     Route: 048
     Dates: start: 20000128, end: 20010110
  4. FOSAMAX [Suspect]
     Route: 065
     Dates: start: 20010224, end: 20030514
  5. FOSAMAX PLUS D [Suspect]
     Route: 048
     Dates: start: 20070319, end: 20110305
  6. FOSAMAX PLUS D [Suspect]
     Route: 048
     Dates: start: 20010224, end: 20030514

REACTIONS (8)
  - HIP FRACTURE [None]
  - LOW TURNOVER OSTEOPATHY [None]
  - GENERAL SYMPTOM [None]
  - BLOOD CHOLESTEROL INCREASED [None]
  - FEMUR FRACTURE [None]
  - STRESS FRACTURE [None]
  - HYPERTONIC BLADDER [None]
  - OSTEOPOROSIS [None]
